FAERS Safety Report 19501048 (Version 1)
Quarter: 2021Q3

REPORT INFORMATION
  Report Type: Spontaneous
  Country: US (occurrence: US)
  Receive Date: 20210707
  Receipt Date: 20210707
  Transmission Date: 20211014
  Serious: Yes (Life-Threatening, Disabling, Other)
  Sender: FDA-Public Use
  Company Number: None

PATIENT
  Age: 7 Year
  Sex: Male
  Weight: 28.35 kg

DRUGS (2)
  1. MULTIVITAMIN [Concomitant]
     Active Substance: VITAMINS
  2. MONTELUKAST [Suspect]
     Active Substance: MONTELUKAST SODIUM
     Indication: ASTHMA
     Dosage: ?          QUANTITY:1 TABLET(S);?

REACTIONS (11)
  - Obsessive-compulsive disorder [None]
  - Depressed mood [None]
  - Antisocial behaviour [None]
  - Decreased appetite [None]
  - Nightmare [None]
  - Hallucination, auditory [None]
  - Abnormal dreams [None]
  - Frustration tolerance decreased [None]
  - Panic reaction [None]
  - Mental disorder [None]
  - Depression [None]

NARRATIVE: CASE EVENT DATE: 20210626
